FAERS Safety Report 8083028-2 (Version None)
Quarter: 2012Q1

REPORT INFORMATION
  Report Type: 
  Country: None (occurrence: None)
  Receive Date: 20120127
  Receipt Date: 20110310
  Transmission Date: 20120608
  Serious: No
  Sender: FDA-Public Use
  Company Number: US-ABBOTT-11P-163-0710574-00

PATIENT
  Sex: Female
  Weight: 65.83 kg

DRUGS (3)
  1. HUMIRA [Suspect]
     Indication: RHEUMATOID ARTHRITIS
     Dates: start: 20040101
  2. UNKNOWN PAIN MEDICATION [Concomitant]
     Indication: PAIN
  3. UNKNOWN SLEEP MEDICATION [Concomitant]
     Indication: INSOMNIA

REACTIONS (3)
  - TOOTH INFECTION [None]
  - EPISTAXIS [None]
  - HEADACHE [None]
